FAERS Safety Report 8396784-0 (Version None)
Quarter: 2012Q1

REPORT INFORMATION
  Report Type: 
  Country: None (occurrence: None)
  Receive Date: 20120323
  Receipt Date: 20110516
  Transmission Date: 20120608
  Serious: Yes (Other)
  Sender: FDA-Public Use
  Company Number: 163-21880-11042258

PATIENT
  Age: 72 Year
  Sex: Female

DRUGS (4)
  1. REVLIMID [Suspect]
  2. REVLIMID [Suspect]
     Indication: MULTIPLE MYELOMA
     Dosage: 25 MG, 1 IN 1 D, PO 15 MG, 1 IN 1 D, PO 15 MG, DAILY X 21 DAYS ON, 7 DAY OFF, PO
     Route: 048
     Dates: start: 20110401
  3. REVLIMID [Suspect]
     Indication: MULTIPLE MYELOMA
     Dosage: 25 MG, 1 IN 1 D, PO 15 MG, 1 IN 1 D, PO 15 MG, DAILY X 21 DAYS ON, 7 DAY OFF, PO
     Route: 048
     Dates: start: 20100824
  4. REVLIMID [Suspect]
     Indication: MULTIPLE MYELOMA
     Dosage: 25 MG, 1 IN 1 D, PO 15 MG, 1 IN 1 D, PO 15 MG, DAILY X 21 DAYS ON, 7 DAY OFF, PO
     Route: 048
     Dates: end: 20110401

REACTIONS (4)
  - FULL BLOOD COUNT DECREASED [None]
  - WHITE BLOOD CELL COUNT DECREASED [None]
  - CONSTIPATION [None]
  - DYSPEPSIA [None]
